FAERS Safety Report 10381456 (Version 1)
Quarter: 2014Q3

REPORT INFORMATION
  Report Type: Spontaneous
  Country: US (occurrence: None)
  Receive Date: 20140811
  Receipt Date: 20140811
  Transmission Date: 20150326
  Serious: Yes (Other)
  Sender: FDA-Public Use
  Company Number: 001777972A

PATIENT
  Age: 16 Year
  Sex: Female

DRUGS (4)
  1. PROACTIV [Suspect]
     Active Substance: BENZOYL PEROXIDE
     Indication: ACNE
     Dosage: DERMAL
     Dates: start: 20140520, end: 20140521
  2. WAL-ITIN GENERIC LORATIDINE [Concomitant]
  3. PROACTIV [Suspect]
     Active Substance: BENZOYL PEROXIDE
     Indication: ACNE
     Dosage: DERMAL
     Dates: start: 20140520, end: 20140521
  4. PROACTIV [Suspect]
     Active Substance: BENZOYL PEROXIDE
     Indication: ACNE
     Dosage: DERMAL
     Dates: start: 20140520, end: 20140521

REACTIONS (2)
  - Swelling face [None]
  - Eyelid oedema [None]

NARRATIVE: CASE EVENT DATE: 20140521
